FAERS Safety Report 8202914-3 (Version None)
Quarter: 2012Q1

REPORT INFORMATION
  Report Type: 
  Country: None (occurrence: None)
  Receive Date: 20120312
  Receipt Date: 20120302
  Transmission Date: 20120608
  Serious: Yes (Other)
  Sender: FDA-Public Use
  Company Number: US-ASTRAZENECA-2012SE14864

PATIENT
  Age: 0 Day
  Sex: Male
  Weight: 3.2 kg

DRUGS (1)
  1. TOPROL-XL [Suspect]
     Route: 015
     Dates: end: 20090810

REACTIONS (6)
  - LEARNING DISORDER [None]
  - CARDIAC SEPTAL DEFECT [None]
  - COMMUNICATION DISORDER [None]
  - NECK MASS [None]
  - TREMOR [None]
  - CONGENITAL MUSCULOSKELETAL ANOMALY [None]
